FAERS Safety Report 18500407 (Version 1)
Quarter: 2020Q4

REPORT INFORMATION
  Report Type: Spontaneous
  Country: DE (occurrence: DE)
  Receive Date: 20201113
  Receipt Date: 20201113
  Transmission Date: 20210114
  Serious: Yes (Disabling, Other)
  Sender: FDA-Public Use
  Company Number: DE-ALKEM LABORATORIES LIMITED-DE-ALKEM-2020-07934

PATIENT
  Age: 54 Year
  Sex: Male
  Weight: 90 kg

DRUGS (6)
  1. PREGABALIN. [Suspect]
     Active Substance: PREGABALIN
     Indication: INTERVERTEBRAL DISC OPERATION
  2. PREGABALIN. [Suspect]
     Active Substance: PREGABALIN
     Indication: NEURALGIA
  3. NOVAMINSULFON 500 MG [Concomitant]
     Active Substance: METAMIZOLE
     Indication: SPINAL DECOMPRESSION
     Dosage: 1000 MILLIGRAM, QID (EVERY 6 HOUR)
     Route: 065
     Dates: start: 201812, end: 201902
  4. TILIDIN STADA 100 MG/8 MG RETARDTABLETTEN [Concomitant]
     Indication: SPINAL DECOMPRESSION
     Dosage: 3 DOSAGE FORM, QD (EVERY 1 DAY)
     Route: 065
     Dates: start: 201812, end: 201902
  5. PREGABALIN. [Suspect]
     Active Substance: PREGABALIN
     Indication: LUMBAR RADICULOPATHY
     Dosage: 225 MILLIGRAM, QD
     Route: 048
     Dates: start: 201812, end: 201902
  6. OXYCODON 5 MG RETARD [Concomitant]
     Indication: PRODUCT USED FOR UNKNOWN INDICATION
     Dosage: 5 MILLIGRAM, QD (EVERY 1 DAY)
     Route: 065
     Dates: start: 201812, end: 201902

REACTIONS (1)
  - Dupuytren^s contracture [Not Recovered/Not Resolved]

NARRATIVE: CASE EVENT DATE: 201909
